FAERS Safety Report 5573637-4 (Version None)
Quarter: 2007Q4

REPORT INFORMATION
  Report Type: 
  Country: None (occurrence: None)
  Receive Date: 20071226
  Receipt Date: 20071214
  Transmission Date: 20080405
  Serious: Yes (Disabling)
  Sender: FDA-Public Use
  Company Number: JP-SANOFI-SYNTHELABO-A01200712707

PATIENT
  Sex: Male
  Weight: 48 kg

DRUGS (11)
  1. CALCIUM LEVOFOLINATE [Concomitant]
     Route: 041
     Dates: start: 20070522, end: 20070522
  2. FLUOROURACIL [Concomitant]
     Route: 040
     Dates: start: 20070522, end: 20070522
  3. FLUOROURACIL [Concomitant]
     Route: 041
     Dates: start: 20070522, end: 20070523
  4. GOSHA-JINKI-GAN [Concomitant]
     Route: 048
     Dates: start: 20070531, end: 20070913
  5. CYANOCOBALAMIN [Concomitant]
     Route: 048
     Dates: start: 20070529, end: 20071025
  6. INTRALIPID 10% [Concomitant]
     Route: 042
     Dates: start: 20070529, end: 20070702
  7. BFLUID [Concomitant]
     Indication: NUTRITIONAL SUPPORT
     Route: 042
     Dates: start: 20070529, end: 20070702
  8. CONCENTRATED HUMAN RED BLOOD CELLS [Concomitant]
     Route: 042
     Dates: start: 20061214, end: 20061214
  9. SEROTONE [Concomitant]
     Route: 042
     Dates: start: 20060719, end: 20070522
  10. DECADRON [Concomitant]
     Route: 042
     Dates: start: 20060719, end: 20070522
  11. OXALIPLATIN [Suspect]
     Indication: RECTAL CANCER
     Route: 041
     Dates: start: 20070522, end: 20070522

REACTIONS (1)
  - GUILLAIN-BARRE SYNDROME [None]
